FAERS Safety Report 5741161-1 (Version None)
Quarter: 2008Q2

REPORT INFORMATION
  Report Type: 
  Country: None (occurrence: None)
  Receive Date: 20080516
  Receipt Date: 20080506
  Transmission Date: 20081010
  Serious: Yes (Other)
  Sender: FDA-Public Use
  Company Number: US-PFIZER INC-2008040487

PATIENT
  Sex: Female
  Weight: 72.6 kg

DRUGS (2)
  1. DILANTIN [Suspect]
     Indication: CONVULSION
  2. PHENYTOIN [Suspect]
     Indication: CONVULSION
     Dates: start: 20080101, end: 20080301

REACTIONS (2)
  - COLITIS [None]
  - CONVULSION [None]
